FAERS Safety Report 12443090 (Version 3)
Quarter: 2016Q2

REPORT INFORMATION
  Report Type: Spontaneous
  Country: ES (occurrence: ES)
  Receive Date: 20160607
  Receipt Date: 20160620
  Transmission Date: 20160815
  Serious: Yes (Hospitalization)
  Sender: FDA-Public Use
  Company Number: ES-B.I. PHARMACEUTICALS,INC./RIDGEFIELD-2016-BI-35799ES

PATIENT
  Age: 79 Year
  Sex: Female
  Weight: 78 kg

DRUGS (4)
  1. EFFICIB [Concomitant]
     Active Substance: METFORMIN HYDROCHLORIDE\SITAGLIPTIN PHOSPHATE
     Indication: TYPE 2 DIABETES MELLITUS
     Dosage: DOSE PER APPLICATION: 50/1000; DAILY DOSE: 100/2000
     Route: 065
     Dates: start: 20110718
  2. JARDIANCE [Suspect]
     Active Substance: EMPAGLIFLOZIN
     Indication: TYPE 2 DIABETES MELLITUS
     Dosage: 10 MG
     Route: 065
     Dates: start: 20160314, end: 20160411
  3. ADIRO [Concomitant]
     Active Substance: ASPIRIN
     Indication: PRODUCT USED FOR UNKNOWN INDICATION
     Dosage: DOSE PER APPLICATION/ DAILY DOSE: 100
     Route: 065
     Dates: start: 20050718
  4. SIMVASTATIN. [Concomitant]
     Active Substance: SIMVASTATIN
     Indication: PRODUCT USED FOR UNKNOWN INDICATION
     Dosage: DOSE PER APPLICATION/ DAILY DOSE: 10
     Route: 065
     Dates: start: 20080707

REACTIONS (4)
  - Urosepsis [Recovered/Resolved]
  - Acute prerenal failure [Recovered/Resolved]
  - Confusional state [Recovered/Resolved]
  - Escherichia bacteraemia [Recovered/Resolved]

NARRATIVE: CASE EVENT DATE: 20160405
